FAERS Safety Report 18241622 (Version 2)
Quarter: 2020Q3

REPORT INFORMATION
  Report Type: Other
  Country: US (occurrence: US)
  Receive Date: 20200908
  Receipt Date: 20200911
  Transmission Date: 20201103
  Serious: Yes (Other)
  Sender: FDA-Public Use
  Company Number: US-ROCHE-2672843

PATIENT
  Age: 76 Year
  Sex: Female

DRUGS (2)
  1. ACTEMRA [Suspect]
     Active Substance: TOCILIZUMAB
     Indication: GIANT CELL ARTERITIS
     Dosage: INJECT 162 MG SUBCUTANEOUSLY EVERY WEEK, ONGOING: YES
     Route: 058
     Dates: start: 201901
  2. PREDNISONE. [Concomitant]
     Active Substance: PREDNISONE

REACTIONS (2)
  - Arthritis [Unknown]
  - Hepatic failure [Recovered/Resolved]

NARRATIVE: CASE EVENT DATE: 201905
